FAERS Safety Report 5095000-5 (Version None)
Quarter: 2006Q3

REPORT INFORMATION
  Report Type: 
  Country: None (occurrence: None)
  Receive Date: 20060901
  Receipt Date: 20060825
  Transmission Date: 20061208
  Serious: Yes (Hospitalization)
  Sender: FDA-Public Use
  Company Number: FR-AVENTIS-200614548EU

PATIENT
  Age: 85 Year
  Sex: Female

DRUGS (11)
  1. FLUDEX [Suspect]
     Route: 048
     Dates: end: 20060718
  2. ALDALIX [Suspect]
     Route: 048
     Dates: end: 20060718
  3. ALLOPURINOL [Suspect]
  4. MODOPAR [Concomitant]
  5. IMOVANE [Concomitant]
  6. DEROXAT [Concomitant]
  7. AMARYL [Concomitant]
  8. PROPOFAN                           /00765201/ [Concomitant]
  9. ESBERIVEN [Concomitant]
  10. TRIVASTAL [Concomitant]
     Route: 048
  11. TARDYFERON [Concomitant]

REACTIONS (2)
  - HYPERKALAEMIA [None]
  - HYPONATRAEMIA [None]
